FAERS Safety Report 4654293-6 (Version None)
Quarter: 2005Q2

REPORT INFORMATION
  Report Type: 
  Country: None (occurrence: None)
  Receive Date: 20050404
  Receipt Date: 20041209
  Transmission Date: 20051028
  Serious: No
  Sender: FDA-Public Use
  Company Number: USA041285737

PATIENT
  Age: 86 Year
  Sex: Female

DRUGS (4)
  1. CYMBALTA [Suspect]
     Indication: PAIN
     Dosage: 30 MG IN THE EVENING
     Dates: start: 20041208
  2. BENICAR [Concomitant]
  3. MECLIZINE [Concomitant]
  4. CELEBREX [Concomitant]

REACTIONS (3)
  - DIARRHOEA [None]
  - FEELING ABNORMAL [None]
  - HUNGER [None]
